FAERS Safety Report 6326128-7 (Version None)
Quarter: 2009Q3

REPORT INFORMATION
  Report Type: 
  Country: None (occurrence: None)
  Receive Date: 20090824
  Receipt Date: 20090818
  Transmission Date: 20100115
  Serious: Yes (Hospitalization, Other)
  Sender: FDA-Public Use
  Company Number: PHHY2009JP35006

PATIENT
  Sex: Male
  Weight: 60 kg

DRUGS (7)
  1. SIMULECT [Suspect]
     Indication: RENAL TRANSPLANT
     Dosage: 20 MG, ONCE/SINGLE
     Route: 042
     Dates: start: 20080624, end: 20080624
  2. SIMULECT [Suspect]
     Dosage: 20 MG, ONCE/SINGLE
     Route: 042
     Dates: start: 20080628, end: 20080628
  3. SANDIMMUNE [Concomitant]
     Indication: RENAL TRANSPLANT
     Dosage: 140 MG
     Route: 042
     Dates: start: 20080624, end: 20080627
  4. NEORAL [Concomitant]
     Indication: RENAL TRANSPLANT
     Dosage: 350 MG
     Route: 048
     Dates: start: 20080627
  5. SOLU-MEDROL [Concomitant]
     Indication: RENAL TRANSPLANT
     Dosage: 500 MG
     Route: 042
     Dates: start: 20080624, end: 20080628
  6. MEDROL [Concomitant]
     Indication: RENAL TRANSPLANT
     Dosage: 40 MG
     Route: 048
     Dates: start: 20080629
  7. CELLCEPT [Concomitant]
     Indication: RENAL TRANSPLANT
     Dosage: 2000 MG
     Route: 048
     Dates: start: 20080625

REACTIONS (3)
  - C-REACTIVE PROTEIN INCREASED [None]
  - ILEUS [None]
  - INTESTINAL OBSTRUCTION [None]
